FAERS Safety Report 5634864-0 (Version None)
Quarter: 2008Q1

REPORT INFORMATION
  Report Type: 
  Country: None (occurrence: None)
  Receive Date: 20080221
  Receipt Date: 20080221
  Transmission Date: 20080703
  Serious: No
  Sender: FDA-Public Use
  Company Number: None

PATIENT
  Age: 65 Year
  Sex: Male
  Weight: 87.5 kg

DRUGS (1)
  1. MOXIFLOXACIN HCL [Suspect]
     Indication: BRONCHITIS
     Dosage: 400MG EVERY DAY PO
     Route: 048
     Dates: start: 20080202, end: 20080204

REACTIONS (6)
  - ANGIOEDEMA [None]
  - BLOOD PRESSURE INCREASED [None]
  - COUGH [None]
  - DRUG HYPERSENSITIVITY [None]
  - PHARYNGEAL OEDEMA [None]
  - WHEEZING [None]
